FAERS Safety Report 9432556 (Version 1)
Quarter: 2013Q3

REPORT INFORMATION
  Report Type: Spontaneous
  Country: SE (occurrence: SE)
  Receive Date: 20130731
  Receipt Date: 20130731
  Transmission Date: 20140515
  Serious: Yes (Other)
  Sender: FDA-Public Use
  Company Number: PHHY2013SE081265

PATIENT
  Age: 68 Year
  Sex: Female

DRUGS (2)
  1. ACLASTA [Suspect]
     Dosage: 5 MG (1 DF PER YEAR)
     Route: 042
     Dates: start: 20120125
  2. ACLASTA [Suspect]
     Dosage: 5 MG (1 DF PER YEAR)
     Route: 042
     Dates: start: 20130318

REACTIONS (2)
  - Venous thrombosis limb [Not Recovered/Not Resolved]
  - Thrombophlebitis [Not Recovered/Not Resolved]
